FAERS Safety Report 10417131 (Version 1)
Quarter: 2014Q3

REPORT INFORMATION
  Report Type: Spontaneous
  Country: GB (occurrence: GB)
  Receive Date: 20140828
  Receipt Date: 20140828
  Transmission Date: 20150326
  Serious: Yes (Disabling)
  Sender: FDA-Public Use
  Company Number: GB-TEVA-503737ISR

PATIENT
  Age: 46 Year
  Sex: Male
  Weight: 100.6 kg

DRUGS (8)
  1. IOPIDINE [Concomitant]
     Active Substance: APRACLONIDINE HYDROCHLORIDE
     Dates: start: 20140423, end: 20140521
  2. ADCAL [Concomitant]
     Dates: start: 20140328, end: 20140618
  3. AMLODIPINE [Interacting]
     Active Substance: AMLODIPINE BESYLATE
     Route: 048
     Dates: start: 20080423, end: 20140801
  4. PRED FORTE [Concomitant]
     Active Substance: PREDNISOLONE ACETATE
     Dates: start: 20140423, end: 20140521
  5. AZATHIOPRINE. [Suspect]
     Active Substance: AZATHIOPRINE
     Indication: COLITIS ULCERATIVE
     Dates: start: 20140423, end: 20140609
  6. ASACOL [Concomitant]
     Active Substance: MESALAMINE
     Dates: start: 20140328, end: 20140712
  7. COSOPT [Concomitant]
     Active Substance: DORZOLAMIDE HYDROCHLORIDE\TIMOLOL MALEATE
     Dates: start: 20140423, end: 20140521
  8. ACULAR [Concomitant]
     Active Substance: KETOROLAC TROMETHAMINE
     Dates: start: 20140423, end: 20140521

REACTIONS (4)
  - Drug interaction [Unknown]
  - Rectal haemorrhage [Recovered/Resolved]
  - Eye pain [Recovered/Resolved]
  - Abdominal distension [Recovered/Resolved]

NARRATIVE: CASE EVENT DATE: 20140331
